FAERS Safety Report 6488685-X (Version None)
Quarter: 2009Q4

REPORT INFORMATION
  Report Type: 
  Country: None (occurrence: None)
  Receive Date: 20091210
  Receipt Date: 20091204
  Transmission Date: 20100525
  Serious: Yes (Other)
  Sender: FDA-Public Use
  Company Number: BR-GILEAD-2009-0025858

PATIENT
  Age: 31 Year
  Sex: Female

DRUGS (2)
  1. TRUVADA [Suspect]
     Indication: HIV INFECTION
     Route: 048
     Dates: start: 20060703, end: 20081103
  2. REYATAZ [Concomitant]
     Indication: HIV INFECTION

REACTIONS (1)
  - ABORTION SPONTANEOUS [None]
